FAERS Safety Report 24846116 (Version 3)
Quarter: 2025Q1

REPORT INFORMATION
  Report Type: Spontaneous
  Country: US (occurrence: US)
  Receive Date: 20250115
  Receipt Date: 20250317
  Transmission Date: 20250409
  Serious: No
  Sender: BIOGEN
  Company Number: US-BIOGEN-2024BI01269240

PATIENT
  Sex: Female

DRUGS (2)
  1. TYSABRI [Suspect]
     Active Substance: NATALIZUMAB
     Indication: Multiple sclerosis
     Route: 050
     Dates: start: 20220110, end: 20220908
  2. TYSABRI [Suspect]
     Active Substance: NATALIZUMAB
     Route: 050
     Dates: start: 20240513

REACTIONS (8)
  - Malaise [Unknown]
  - Irritability [Unknown]
  - Infusion site reaction [Unknown]
  - Vein disorder [Unknown]
  - Infusion site pain [Unknown]
  - Injury [Unknown]
  - Hypoaesthesia [Unknown]
  - Somnolence [Unknown]
